FAERS Safety Report 5166922-1 (Version None)
Quarter: 2006Q4

REPORT INFORMATION
  Report Type: 
  Country: None (occurrence: None)
  Receive Date: 20061207
  Receipt Date: 20050317
  Transmission Date: 20070319
  Serious: Yes (Disabling, Other)
  Sender: FDA-Public Use
  Company Number: US-ELI_LILLY_AND_COMPANY-US_0503114506

PATIENT
  Age: 61 Year
  Sex: Male

DRUGS (3)
  1. CIALIS [Suspect]
     Dosage: UNK, UNKNOWN
     Route: 048
     Dates: start: 20040204
  2. CIALIS [Suspect]
     Dosage: UNK, UNK
     Dates: start: 20040501
  3. COUMADIN [Concomitant]
     Dosage: 7.5 MG, DAILY (1/D)
     Route: 048

REACTIONS (22)
  - ANTERIOR CHAMBER CELL [None]
  - ATRIAL FIBRILLATION [None]
  - BLOOD PRESSURE DIASTOLIC INCREASED [None]
  - CATARACT [None]
  - CHEST PAIN [None]
  - GLAUCOMA [None]
  - HEADACHE [None]
  - INFLAMMATION [None]
  - IRIS NEOVASCULARISATION [None]
  - MACULAR ISCHAEMIA [None]
  - MACULAR OEDEMA [None]
  - NEOVASCULARISATION [None]
  - PAPILLOEDEMA [None]
  - RETINAL EXUDATES [None]
  - RETINAL HAEMORRHAGE [None]
  - RETINAL NEOVASCULARISATION [None]
  - RETINAL TEAR [None]
  - RETINAL VEIN OCCLUSION [None]
  - VISION BLURRED [None]
  - VITREOUS FLOATERS [None]
  - VITREOUS HAEMORRHAGE [None]
  - VOMITING [None]
